FAERS Safety Report 7025027-5 (Version None)
Quarter: 2010Q4

REPORT INFORMATION
  Report Type: 
  Country: None (occurrence: None)
  Receive Date: 20101001
  Receipt Date: 20100924
  Transmission Date: 20110411
  Serious: Yes (Other)
  Sender: FDA-Public Use
  Company Number: FR-ABBOTT-10P-056-0630869-00

PATIENT
  Sex: Male

DRUGS (6)
  1. ENANTONE LP 30 MG PREP INJ [Suspect]
     Indication: PROSTATE CANCER
     Dates: start: 20100123
  2. ENANTONE 11.25 MG [Suspect]
     Indication: PROSTATE CANCER
     Dates: start: 20090701, end: 20100123
  3. VASERETIC [Concomitant]
     Indication: HYPERTENSION
     Route: 048
  4. MEDIATOR [Concomitant]
     Indication: DIABETES MELLITUS
     Route: 048
  5. TAHOR [Concomitant]
     Indication: HYPERCHOLESTEROLAEMIA
     Route: 048
  6. TAHOR [Concomitant]
     Indication: CARDIOVASCULAR EVENT PROPHYLAXIS

REACTIONS (2)
  - INJECTION SITE HAEMATOMA [None]
  - INJECTION SITE VESICLES [None]
